FAERS Safety Report 13672814 (Version 3)
Quarter: 2017Q4

REPORT INFORMATION
  Report Type: Report from Study
  Country: None (occurrence: NL)
  Receive Date: 20170621
  Receipt Date: 20171021
  Transmission Date: 20180320
  Serious: Yes (Other)
  Sender: FDA-Public Use
  Company Number: NL-ABBVIE-17K-114-2012699-00

PATIENT
  Age: 82 Year
  Sex: Male

DRUGS (2)
  1. DUODOPA [Suspect]
     Active Substance: CARBIDOPA\LEVODOPA
     Indication: PARKINSON^S DISEASE
     Dosage: MD:  9.1  CD:  6.1     ED:  5.4  ND:  3.8  ED (NIGHT): 3
     Route: 050
     Dates: start: 20110210
  2. PROPRANOLOL [Concomitant]
     Active Substance: PROPRANOLOL HYDROCHLORIDE
     Indication: PRODUCT USED FOR UNKNOWN INDICATION

REACTIONS (6)
  - Postoperative delirium [Not Recovered/Not Resolved]
  - Device use issue [Unknown]
  - Musculoskeletal stiffness [Unknown]
  - Hip fracture [Recovered/Resolved]
  - Restlessness [Not Recovered/Not Resolved]
  - Hypotension [Unknown]

NARRATIVE: CASE EVENT DATE: 20170602
